FAERS Safety Report 9397916 (Version 1)
Quarter: 2013Q3

REPORT INFORMATION
  Report Type: Spontaneous
  Country: IT (occurrence: None)
  Receive Date: 20130709
  Receipt Date: 20130709
  Transmission Date: 20140515
  Serious: Yes (Hospitalization)
  Sender: FDA-Public Use
  Company Number: TPA2013A06340

PATIENT
  Age: 75 Year
  Sex: Male

DRUGS (1)
  1. ADENURIC (FEBUXOSTAT) [Suspect]
     Route: 048
     Dates: start: 20130430, end: 20130430

REACTIONS (3)
  - Aortic embolus [None]
  - Dysuria [None]
  - Face oedema [None]
